FAERS Safety Report 12045920 (Version 1)
Quarter: 2016Q1

REPORT INFORMATION
  Report Type: Spontaneous
  Country: JP (occurrence: JP)
  Receive Date: 20160208
  Receipt Date: 20160208
  Transmission Date: 20160526
  Serious: Yes (Death, Hospitalization)
  Sender: FDA-Public Use
  Company Number: GXJP2016JP000493

PATIENT
  Age: 4 Decade
  Sex: Male

DRUGS (2)
  1. PAZOPANIB [Suspect]
     Active Substance: PAZOPANIB
     Indication: METASTASES TO LIVER
     Dosage: 400 MG, QD
     Route: 048
  2. DOXORUBICIN HYDROCHLORIDE INJECTION [Suspect]
     Active Substance: DOXORUBICIN HYDROCHLORIDE
     Indication: METASTASES TO LIVER
     Dosage: TOTAL DOSE OF 480 MG/M2
     Route: 065

REACTIONS (4)
  - Orthopnoea [Fatal]
  - Cardiomyopathy [Fatal]
  - Palpitations [Fatal]
  - Cardiac failure [Fatal]
